FAERS Safety Report 10655677 (Version 2)
Quarter: 2015Q1

REPORT INFORMATION
  Report Type: Spontaneous
  Country: IT (occurrence: IT)
  Receive Date: 20141216
  Receipt Date: 20150122
  Transmission Date: 20150720
  Serious: Yes (Death, Hospitalization, Other)
  Sender: FDA-Public Use
  Company Number: IT-GLAXOSMITHKLINE-IT2014GSK035858

PATIENT
  Age: 36 Year
  Sex: Male

DRUGS (1)
  1. REVOLADE [Suspect]
     Active Substance: ELTROMBOPAG
     Indication: IMMUNE THROMBOCYTOPENIC PURPURA
     Dosage: 75 MG, QD
     Route: 048
     Dates: start: 20130521, end: 20141130

REACTIONS (3)
  - Anaemia [Unknown]
  - Autoimmune haemolytic anaemia [Fatal]
  - Jaundice [Unknown]

NARRATIVE: CASE EVENT DATE: 20141130
